FAERS Safety Report 5821507-6 (Version None)
Quarter: 2008Q3

REPORT INFORMATION
  Report Type: 
  Country: None (occurrence: None)
  Receive Date: 20080722
  Receipt Date: 20080715
  Transmission Date: 20090109
  Serious: Yes (Hospitalization)
  Sender: FDA-Public Use
  Company Number: 163-21880-08041872

PATIENT
  Age: 53 Year
  Sex: Male

DRUGS (4)
  1. REVLIMID [Suspect]
     Indication: CHRONIC LYMPHOCYTIC LEUKAEMIA
     Dosage: 5 MG, X21 DAYS EVERY DAY 28 DAYS, ORAL; 10 MG, X21 DAYS EVERY 28 DAYS, ORAL
     Route: 048
     Dates: start: 20080425, end: 20080427
  2. REVLIMID [Suspect]
     Indication: CHRONIC LYMPHOCYTIC LEUKAEMIA
     Dosage: 5 MG, X21 DAYS EVERY DAY 28 DAYS, ORAL; 10 MG, X21 DAYS EVERY 28 DAYS, ORAL
     Route: 048
     Dates: start: 20080429
  3. ALLOPURINOL [Concomitant]
  4. SOLY MEDROL (METHYLPREDNISOLONE SODIUM SUCCINATE) [Concomitant]

REACTIONS (5)
  - DEHYDRATION [None]
  - DRUG TOXICITY [None]
  - HYPOTENSION [None]
  - PYREXIA [None]
  - TUMOUR FLARE [None]
